FAERS Safety Report 8801352 (Version 1)
Quarter: 2012Q4

REPORT INFORMATION
  Report Type: 
  Country: US (occurrence: US)
  Receive Date: 20120921
  Receipt Date: 20120921
  Transmission Date: 20130627
  Serious: Yes (Hospitalization, Other)
  Sender: FDA-Public Use
  Company Number: US-NOVOPROD-357855

PATIENT
  Age: 78 Year
  Sex: Female
  Weight: 65.31 kg

DRUGS (11)
  1. VICTOZA [Suspect]
     Indication: TYPE 2 DIABETES MELLITUS
     Dosage: 0.6 mg, qd
     Route: 058
     Dates: start: 20120319
  2. VICTOZA [Suspect]
     Dosage: 1.2 mg, qd
     Route: 058
     Dates: start: 20120402
  3. VICTOZA [Suspect]
     Dosage: 1.8 mg, qd
     Route: 058
     Dates: start: 20120426, end: 20120720
  4. ADVAIR [Concomitant]
     Indication: ASTHMA
     Dosage: 1 Puff, bid
     Route: 055
  5. ASA [Concomitant]
     Indication: CARDIOVASCULAR EVENT PROPHYLAXIS
     Dosage: 81 mg, qd
  6. AMLODIPINE [Concomitant]
     Indication: BLOOD PRESSURE
     Dosage: 10 mg, qd
  7. CALCIUM +VIT D [Concomitant]
     Indication: BONE DISORDER
     Dosage: UNK, bid
  8. SIMVASTATIN [Concomitant]
     Indication: BLOOD CHOLESTEROL
     Dosage: 20 mg, qd
  9. LOSARTAN [Concomitant]
     Indication: BLOOD PRESSURE
     Dosage: 100 mg, qd
  10. PREMARIN [Concomitant]
     Indication: PRODUCT USED FOR UNKNOWN INDICATION
     Dosage: pea sized amount, 1-3 ounces/week
     Route: 067
  11. MECLIZINE                          /00072801/ [Concomitant]
     Indication: VERTIGO
     Dosage: 25 mg every 8 hours, prn

REACTIONS (3)
  - Tubulointerstitial nephritis [Recovering/Resolving]
  - Hypersensitivity [Recovered/Resolved]
  - Nausea [Unknown]
